FAERS Safety Report 4622231-8 (Version None)
Quarter: 2005Q1

REPORT INFORMATION
  Report Type: 
  Country: None (occurrence: None)
  Receive Date: 20050330
  Receipt Date: 20050318
  Transmission Date: 20050727
  Serious: Yes (Other)
  Sender: FDA-Public Use
  Company Number: JP-JNJFOC-20040807221

PATIENT
  Sex: Female
  Weight: 59 kg

DRUGS (6)
  1. REMICADE [Suspect]
     Route: 042
  2. REMICADE [Suspect]
     Route: 042
  3. REMICADE [Suspect]
     Route: 042
  4. REMICADE [Suspect]
     Indication: RHEUMATOID ARTHRITIS
     Route: 042
  5. METHOTREXATE [Concomitant]
  6. PREDNISOLONE [Concomitant]

REACTIONS (9)
  - CHILLS [None]
  - CYANOSIS [None]
  - DYSPNOEA [None]
  - FEELING ABNORMAL [None]
  - HYPOXIA [None]
  - INFUSION RELATED REACTION [None]
  - MALAISE [None]
  - PO2 DECREASED [None]
  - PYREXIA [None]
